FAERS Safety Report 13821453 (Version 1)
Quarter: 2017Q3

REPORT INFORMATION
  Report Type: Spontaneous
  Country: ES (occurrence: ES)
  Receive Date: 20170801
  Receipt Date: 20170801
  Transmission Date: 20171127
  Serious: Yes (Death)
  Sender: FDA-Public Use
  Company Number: ES-009507513-1707ESP012412

PATIENT
  Age: 36 Year
  Sex: Male

DRUGS (9)
  1. PREGABALIN. [Suspect]
     Active Substance: PREGABALIN
  2. ALCOHOL. [Suspect]
     Active Substance: ALCOHOL
  3. MORPHINE [Suspect]
     Active Substance: MORPHINE
  4. ALPRAZOLAM. [Suspect]
     Active Substance: ALPRAZOLAM
  5. MIRTAZAPINE. [Suspect]
     Active Substance: MIRTAZAPINE
     Route: 048
  6. LEVOMEPROMAZINE [Suspect]
     Active Substance: LEVOMEPROMAZINE
  7. COCAINE [Suspect]
     Active Substance: COCAINE
  8. CLONAZEPAM. [Suspect]
     Active Substance: CLONAZEPAM
  9. TRAZODONE HYDROCHLORIDE. [Suspect]
     Active Substance: TRAZODONE HYDROCHLORIDE

REACTIONS (1)
  - Acute pulmonary oedema [Fatal]

NARRATIVE: CASE EVENT DATE: 2015
